FAERS Safety Report 21758319 (Version 2)
Quarter: 2022Q4

REPORT INFORMATION
  Report Type: Spontaneous
  Country: US (occurrence: US)
  Receive Date: 20221221
  Receipt Date: 20221226
  Transmission Date: 20230113
  Serious: No
  Sender: FDA-Public Use
  Company Number: US-002147023-NVSC2022US293399

PATIENT
  Age: 74 Year
  Sex: Male

DRUGS (1)
  1. HYCAMTIN [Suspect]
     Active Substance: TOPOTECAN HYDROCHLORIDE
     Indication: Thyroid cancer
     Dosage: 5 MG, QD (FREQUENCY-TAKE 5 CAPSULES BY MOUTH DAILY ON DAYS 1-5 EVERY 21DAYS)
     Route: 048
     Dates: start: 202212

REACTIONS (2)
  - Diarrhoea [Unknown]
  - Product use in unapproved indication [Unknown]

NARRATIVE: CASE EVENT DATE: 20221201
